FAERS Safety Report 25995587 (Version 2)
Quarter: 2025Q4

REPORT INFORMATION
  Report Type: Spontaneous
  Country: US (occurrence: US)
  Receive Date: 20251104
  Receipt Date: 20251124
  Transmission Date: 20260117
  Serious: Yes (Hospitalization, Other)
  Sender: HIKMA
  Company Number: US-HIKMA PHARMACEUTICALS USA INC.-US-H14001-25-11625

PATIENT
  Age: 12 Year
  Sex: Male
  Weight: 55.4 kg

DRUGS (6)
  1. MERCAPTOPURINE [Suspect]
     Active Substance: MERCAPTOPURINE
     Dosage: 100 MILLIGRAM, QD, FRI - SUN
     Route: 048
     Dates: start: 20220714
  2. MERCAPTOPURINE [Suspect]
     Active Substance: MERCAPTOPURINE
     Indication: Leukaemia
     Dosage: 75 MILLIGRAM, QD, MON - TH
     Route: 048
     Dates: start: 20220714
  3. METHOTREXATE [Suspect]
     Active Substance: METHOTREXATE
     Indication: Leukaemia
     Dosage: 30 MILLIGRAM, WEEKLY
     Route: 048
     Dates: start: 20221215
  4. PREDNISONE [Suspect]
     Active Substance: PREDNISONE
     Indication: Leukaemia
     Dosage: 30 MILLIGRAM, BID
     Route: 048
     Dates: start: 20230511
  5. RUXOLITINIB [Suspect]
     Active Substance: RUXOLITINIB
     Indication: Leukaemia
     Dosage: 75 MILLIGRAM, BID
     Route: 048
     Dates: start: 20220714
  6. VINCRISTINE [Suspect]
     Active Substance: VINCRISTINE
     Indication: Leukaemia
     Dosage: 2 MILLIGRAM, QD
     Route: 042
     Dates: start: 20220728

REACTIONS (1)
  - Febrile neutropenia [Recovered/Resolved]

NARRATIVE: CASE EVENT DATE: 20250925
